FAERS Safety Report 20882186 (Version 1)
Quarter: 2022Q2

REPORT INFORMATION
  Report Type: Spontaneous
  Country: IQ (occurrence: None)
  Receive Date: 20220527
  Receipt Date: 20220527
  Transmission Date: 20220721
  Serious: Yes (Other)
  Sender: FDA-Public Use
  Company Number: IQ-ROCHE-3101082

PATIENT
  Age: 36 Year
  Sex: Male
  Weight: 68 kg

DRUGS (9)
  1. MABTHERA [Suspect]
     Active Substance: RITUXIMAB
     Indication: B-cell lymphoma
     Dosage: 8 CYCLES
     Route: 065
     Dates: start: 202011, end: 202104
  2. CYCLOPHOSPHAMIDE [Suspect]
     Active Substance: CYCLOPHOSPHAMIDE
     Indication: B-cell lymphoma
     Dosage: 8 CYCLES
     Route: 065
     Dates: start: 202011, end: 202104
  3. DOXORUBICIN HYDROCHLORIDE [Suspect]
     Active Substance: DOXORUBICIN HYDROCHLORIDE
     Indication: B-cell lymphoma
     Dosage: 8 CYCLES
     Route: 065
     Dates: start: 202011, end: 202104
  4. VINCRISTINE [Suspect]
     Active Substance: VINCRISTINE
     Indication: B-cell lymphoma
     Dosage: 8 CYCLES
     Route: 065
     Dates: start: 202011, end: 202104
  5. PREDNISONE [Suspect]
     Active Substance: PREDNISONE
     Indication: B-cell lymphoma
     Dosage: 8 CYCLES
     Route: 065
     Dates: start: 202011, end: 202104
  6. DEXAMETHASONE [Suspect]
     Active Substance: DEXAMETHASONE
     Indication: B-cell lymphoma
     Dosage: 3 CYCLES
     Route: 065
     Dates: start: 202108, end: 20211027
  7. CYTARABINE [Suspect]
     Active Substance: CYTARABINE
     Indication: B-cell lymphoma
     Dosage: 3 CYCLES
     Route: 065
     Dates: start: 202108, end: 20211027
  8. CISPLATIN [Suspect]
     Active Substance: CISPLATIN
     Indication: B-cell lymphoma
     Dosage: 3 CYCLES
     Route: 065
     Dates: start: 202108, end: 20211027
  9. GEMCITABINE [Suspect]
     Active Substance: GEMCITABINE
     Indication: B-cell lymphoma
     Route: 065

REACTIONS (1)
  - Disease progression [Unknown]
